FAERS Safety Report 14196283 (Version 2)
Quarter: 2017Q4

REPORT INFORMATION
  Report Type: Spontaneous
  Country: JP (occurrence: JP)
  Receive Date: 20171116
  Receipt Date: 20171122
  Transmission Date: 20180321
  Serious: Yes (Hospitalization)
  Sender: FDA-Public Use
  Company Number: JP-ELI_LILLY_AND_COMPANY-JP201711006012

PATIENT
  Age: 66 Year
  Sex: Male

DRUGS (5)
  1. FU [Concomitant]
     Active Substance: FLUOROURACIL
     Dosage: 240 MG, OTHER
     Route: 041
     Dates: start: 20171005, end: 20171005
  2. IRINOTECAN [Concomitant]
     Active Substance: IRINOTECAN
     Indication: COLON CANCER
     Dosage: 150 MG, OTHER
     Dates: start: 20171005, end: 20171005
  3. FU [Concomitant]
     Active Substance: FLUOROURACIL
     Indication: COLON CANCER
     Dosage: 500 MG, OTHER
     Route: 040
     Dates: start: 20171005, end: 20171005
  4. LEVOFOLINATE                       /06682103/ [Concomitant]
     Active Substance: LEVOLEUCOVORIN CALCIUM
     Indication: COLON CANCER
     Dosage: 325 MG, OTHER
     Dates: start: 20171005, end: 20171005
  5. CYRAMZA [Suspect]
     Active Substance: RAMUCIRUMAB
     Indication: COLON CANCER
     Dosage: 500 MG, OTHER
     Route: 041
     Dates: start: 20171005, end: 20171005

REACTIONS (1)
  - Nephrotic syndrome [Not Recovered/Not Resolved]

NARRATIVE: CASE EVENT DATE: 20171019
